FAERS Safety Report 9463210 (Version 2)
Quarter: 2013Q3

REPORT INFORMATION
  Report Type: Spontaneous
  Country: GB (occurrence: GB)
  Receive Date: 20130818
  Receipt Date: 20130830
  Transmission Date: 20140515
  Serious: Yes (Other)
  Sender: FDA-Public Use
  Company Number: PHFR2013GB004654

PATIENT
  Age: 0 Day
  Sex: Male
  Weight: 1.86 kg

DRUGS (6)
  1. TEGRETOL [Suspect]
     Dosage: UNK UKN, UNK
     Route: 064
  2. TRAMADOL [Suspect]
     Dosage: UNK UKN, UNK
     Route: 064
  3. TRAMADOL [Suspect]
     Route: 064
  4. VENLAFAXINE [Suspect]
     Dosage: UNK UKN, UNK
     Route: 064
  5. VENLAFAXINE [Suspect]
     Route: 064
  6. PREGABALIN [Suspect]
     Dosage: UNK UKN, UNK
     Route: 064

REACTIONS (8)
  - Neonatal respiratory distress syndrome [Unknown]
  - Jaundice neonatal [Unknown]
  - Premature baby [Unknown]
  - Apgar score low [Unknown]
  - Low birth weight baby [Unknown]
  - Head circumference abnormal [Unknown]
  - Foetal exposure during pregnancy [Unknown]
  - Exposure during breast feeding [Unknown]
